FAERS Safety Report 8292751-6 (Version None)
Quarter: 2012Q2

REPORT INFORMATION
  Report Type: 
  Country: None (occurrence: None)
  Receive Date: 20120417
  Receipt Date: 20120125
  Transmission Date: 20120825
  Serious: No
  Sender: FDA-Public Use
  Company Number: US-ASTRAZENECA-2012SE05713

PATIENT
  Sex: Female

DRUGS (3)
  1. ALBUTEROL [Concomitant]
  2. NEXIUM [Suspect]
     Route: 048
  3. PRILOSEC OTC [Suspect]
     Route: 048

REACTIONS (2)
  - SINUSITIS [None]
  - DRUG INEFFECTIVE [None]
